FAERS Safety Report 5788409-5 (Version None)
Quarter: 2008Q2

REPORT INFORMATION
  Report Type: 
  Country: None (occurrence: None)
  Receive Date: 20080625
  Receipt Date: 20080619
  Transmission Date: 20081010
  Serious: Yes (Other)
  Sender: FDA-Public Use
  Company Number: US-ALLERGAN-0807559US

PATIENT
  Sex: Female

DRUGS (1)
  1. PREDNISOLONE ACETATE SUS [Suspect]
     Indication: RETINAL DETACHMENT
     Route: 047
     Dates: start: 20080308, end: 20080529

REACTIONS (3)
  - DYSPNOEA [None]
  - JOINT SWELLING [None]
  - OEDEMA PERIPHERAL [None]
